FAERS Safety Report 12674881 (Version 3)
Quarter: 2016Q3

REPORT INFORMATION
  Report Type: Spontaneous
  Country: NO (occurrence: NO)
  Receive Date: 20160823
  Receipt Date: 20160919
  Transmission Date: 20161109
  Serious: Yes (Life-Threatening, Hospitalization, Other)
  Sender: FDA-Public Use
  Company Number: DE-ASTRAZENECA-2016SE88142

PATIENT
  Age: 40 Year
  Sex: Female

DRUGS (4)
  1. ATORVASTATIN [Concomitant]
     Active Substance: ATORVASTATIN
     Indication: EUPHORIC MOOD
  2. ATORVASTATIN [Concomitant]
     Active Substance: ATORVASTATIN
     Indication: HYPERCHOLESTEROLAEMIA
  3. OMEPRAZOLE. [Suspect]
     Active Substance: OMEPRAZOLE
     Indication: PRODUCT USED FOR UNKNOWN INDICATION
     Dosage: 20 TO 40 MG, DAILY
     Route: 048
  4. CERAZETTE [Concomitant]
     Active Substance: DESOGESTREL
     Indication: CONTRACEPTION

REACTIONS (12)
  - Acute kidney injury [Recovering/Resolving]
  - Ventricular arrhythmia [Recovering/Resolving]
  - Diarrhoea [Unknown]
  - Stress [Unknown]
  - Palpitations [Unknown]
  - Hypomagnesaemia [Recovered/Resolved]
  - Fatigue [Unknown]
  - Cardiac arrest [Recovering/Resolving]
  - Torsade de pointes [Unknown]
  - Loss of consciousness [Recovered/Resolved]
  - Nausea [Unknown]
  - Dehydration [Unknown]

NARRATIVE: CASE EVENT DATE: 20150417
